FAERS Safety Report 8995896 (Version 1)
Quarter: 2013Q1

REPORT INFORMATION
  Report Type: Spontaneous
  Country: GB (occurrence: GB)
  Receive Date: 20130103
  Receipt Date: 20130103
  Transmission Date: 20140127
  Serious: Yes (Other)
  Sender: FDA-Public Use
  Company Number: GB-TEVA-378240ISR

PATIENT
  Age: 34 Year
  Sex: Female
  Weight: 100 kg

DRUGS (16)
  1. PREDNISOLONE [Suspect]
     Indication: HIDRADENITIS
     Dosage: INDICATION: REDUCE INFLAMMATION FROM SKIN CONDITION HIDRADENITIS SUPPURATIVA.
     Route: 048
     Dates: start: 20120722
  2. BISOPROLOL [Suspect]
     Indication: SINUS TACHYCARDIA
     Route: 048
     Dates: start: 20120718
  3. FENTANYL [Concomitant]
  4. MORPHINE SULPHATE [Concomitant]
  5. NAPROXEN SODIUM [Concomitant]
  6. OMEPRAZOLE [Concomitant]
  7. FLUOXETINE HYDROCHLORIDE [Concomitant]
  8. NORTRIPTYLINE HYDROCHLORIDE [Concomitant]
  9. LOESTRIN [Concomitant]
  10. BUCCASTEM [Concomitant]
  11. DOMPERIDONE [Concomitant]
  12. CETIRIZINE [Concomitant]
  13. DALACIN C [Concomitant]
  14. HIBISCRUB [Concomitant]
  15. MEFIX [Concomitant]
  16. VENTOLIN [Concomitant]

REACTIONS (1)
  - Bradycardia [Recovered/Resolved]
